FAERS Safety Report 8330660-4 (Version None)
Quarter: 2012Q2

REPORT INFORMATION
  Report Type: 
  Country: None (occurrence: None)
  Receive Date: 20120502
  Receipt Date: 20120407
  Transmission Date: 20120825
  Serious: Yes (Other)
  Sender: FDA-Public Use
  Company Number: US-AMGEN-USASP2012014308

PATIENT
  Age: 39 Year
  Sex: Female

DRUGS (2)
  1. SULFASALAZINE [Concomitant]
     Dosage: 1 MG, UNK
     Dates: start: 20110901
  2. ENBREL [Suspect]
     Indication: ANKYLOSING SPONDYLITIS
     Dosage: 50 MG, QWK
     Dates: start: 20120228, end: 20120330

REACTIONS (9)
  - OROPHARYNGEAL PAIN [None]
  - NASOPHARYNGITIS [None]
  - ARTHRALGIA [None]
  - INCREASED BRONCHIAL SECRETION [None]
  - COUGH [None]
  - CHEST PAIN [None]
  - SINUS CONGESTION [None]
  - BRONCHITIS [None]
  - ORAL HERPES [None]
